FAERS Safety Report 7591473-4 (Version None)
Quarter: 2011Q3

REPORT INFORMATION
  Report Type: 
  Country: None (occurrence: None)
  Receive Date: 20110701
  Receipt Date: 20110701
  Transmission Date: 20111222
  Serious: Yes (Other)
  Sender: FDA-Public Use
  Company Number: None

PATIENT
  Age: 34 Year
  Sex: Female
  Weight: 120.2032 kg

DRUGS (1)
  1. VENLAFAXINE [Suspect]
     Indication: DEPRESSION
     Dosage: 1 TABLET ONCE DAILY PO
     Route: 048

REACTIONS (5)
  - VISION BLURRED [None]
  - RETINAL VEIN THROMBOSIS [None]
  - PRODUCT SUBSTITUTION ISSUE [None]
  - RETINAL VEIN OCCLUSION [None]
  - HYPERTENSION [None]
